FAERS Safety Report 26025932 (Version 1)
Quarter: 2025Q4

REPORT INFORMATION
  Report Type: Spontaneous
  Country: US (occurrence: None)
  Receive Date: 20251110
  Receipt Date: 20251110
  Transmission Date: 20260117
  Serious: Yes (Disabling)
  Sender: FDA-CTU
  Company Number: None

PATIENT
  Age: 24 Year
  Sex: Female
  Weight: 60.75 kg

DRUGS (2)
  1. ACCUTANE [Suspect]
     Active Substance: ISOTRETINOIN
     Indication: Acne
     Dates: start: 20230707, end: 20231001
  2. ACCUTANE [Suspect]
     Active Substance: ISOTRETINOIN
     Indication: Acne
     Dates: start: 20220707, end: 20230707

REACTIONS (5)
  - Back disorder [None]
  - Arthritis [None]
  - Dry skin [None]
  - Carpal tunnel syndrome [None]
  - Arthralgia [None]

NARRATIVE: CASE EVENT DATE: 20230707
